FAERS Safety Report 16204218 (Version 1)
Quarter: 2019Q2

REPORT INFORMATION
  Report Type: Report from Study
  Country: US (occurrence: US)
  Receive Date: 20190416
  Receipt Date: 20190416
  Transmission Date: 20190711
  Serious: Yes (Hospitalization, Other)
  Sender: FDA-Public Use
  Company Number: US-SA-2019SA100066

PATIENT
  Age: 72 Year
  Sex: Female

DRUGS (2)
  1. TOUJEO [Concomitant]
     Active Substance: INSULIN GLARGINE
     Dosage: UNK
  2. INSULIN GLARGINE [Suspect]
     Active Substance: INSULIN GLARGINE
     Dosage: UNK

REACTIONS (6)
  - Nephrolithiasis [Unknown]
  - Intracardiac thrombus [Unknown]
  - Product use issue [Unknown]
  - Urinary tract infection [Unknown]
  - Stent placement [Unknown]
  - Syncope [Unknown]

NARRATIVE: CASE EVENT DATE: 20180415
